FAERS Safety Report 9767252 (Version 1)
Quarter: 2013Q4

REPORT INFORMATION
  Report Type: Spontaneous
  Country: US (occurrence: US)
  Receive Date: 20131217
  Receipt Date: 20131217
  Transmission Date: 20140711
  Serious: Yes (Other)
  Sender: FDA-Public Use
  Company Number: US-GLAXOSMITHKLINE-A1045320A

PATIENT
  Age: 68 Year
  Sex: Female
  Weight: 65.9 kg

DRUGS (4)
  1. VOTRIENT [Suspect]
     Indication: RENAL CANCER
     Dosage: 800MG PER DAY
     Route: 065
     Dates: start: 20130621
  2. UNKNOWN [Concomitant]
  3. MULTIVITAMIN WITH IRON [Concomitant]
  4. LEVOTHROID [Concomitant]

REACTIONS (8)
  - Dysgeusia [Not Recovered/Not Resolved]
  - Diarrhoea [Not Recovered/Not Resolved]
  - Vomiting [Unknown]
  - Hypertension [Unknown]
  - Weight decreased [Unknown]
  - Hypothyroidism [Unknown]
  - Ageusia [Unknown]
  - Nephrectomy [Unknown]
